FAERS Safety Report 9140972 (Version 4)
Quarter: 2013Q2

REPORT INFORMATION
  Report Type: Report from Study
  Country: BR (occurrence: BR)
  Receive Date: 20130305
  Receipt Date: 20130523
  Transmission Date: 20140414
  Serious: Yes (Life-Threatening, Hospitalization)
  Sender: FDA-Public Use
  Company Number: BR-VERTEX PHARMACEUTICALS INC.-2013-003057

PATIENT
  Age: 37 Year
  Sex: Male

DRUGS (8)
  1. VX-950 (TELAPREVIR) [Suspect]
     Indication: PRODUCT USED FOR UNKNOWN INDICATION
     Dosage: 1125 MG, TID
     Route: 048
     Dates: start: 20121205, end: 20130201
  2. RIBAVIRIN [Suspect]
     Indication: PRODUCT USED FOR UNKNOWN INDICATION
     Dosage: DOSAGE FORM: UNSPECIFIED
     Route: 048
     Dates: start: 20121205, end: 20130201
  3. PEG-INTERFERON [Suspect]
     Indication: PRODUCT USED FOR UNKNOWN INDICATION
     Dosage: DOSAGE FORM: UNSPECIFIED
     Route: 058
     Dates: start: 20121205, end: 20130201
  4. FINASTERIDE [Concomitant]
     Indication: ALOPECIA
     Dosage: DOSAGE FORM: UNSPECIFIED
     Route: 048
  5. DIPYRONE [Concomitant]
     Indication: PYREXIA
     Dosage: DOSAGE FORM: DROPS
     Route: 048
     Dates: start: 20121206, end: 20121206
  6. DIPYRONE [Concomitant]
     Dosage: DOSAGE FORM: DROPS
     Route: 048
     Dates: start: 20121207, end: 20121207
  7. HYDROXYZINE [Concomitant]
     Indication: PRURITUS
     Dosage: DOSAGE FORM: UNSPECIFIED
     Route: 048
     Dates: start: 20121215, end: 20121216
  8. ANTIRETROVIRAL [Concomitant]
     Indication: ANTIVIRAL TREATMENT
     Dosage: DOSAGE FORM: UNSPECIFIED
     Route: 065

REACTIONS (3)
  - Epistaxis [Recovered/Resolved]
  - Endocarditis [Recovered/Resolved]
  - Anaemia [Recovered/Resolved]
